FAERS Safety Report 4452806-0 (Version None)
Quarter: 2004Q3

REPORT INFORMATION
  Report Type: 
  Country: None (occurrence: None)
  Receive Date: 20040813
  Receipt Date: 20040512
  Transmission Date: 20050211
  Serious: No
  Sender: FDA-Public Use
  Company Number: S04-USA-02997-01

PATIENT
  Age: 83 Year
  Sex: Female

DRUGS (7)
  1. NAMENDA [Suspect]
     Indication: DEMENTIA
     Dosage: 5 MG QD PO
     Route: 048
     Dates: start: 20040301, end: 20040101
  2. NAMENDA [Suspect]
     Indication: DEMENTIA
     Dosage: 10 MG BID PO
     Route: 048
     Dates: start: 20040101, end: 20040523
  3. NAMENDA [Suspect]
     Indication: DEMENTIA
     Dosage: 10 MG QD PO
     Route: 048
     Dates: start: 20040524
  4. MECLIZINE [Concomitant]
  5. ARICEPT [Concomitant]
  6. ZOLOFT [Concomitant]
  7. HYPERTENSION MEDICATION (NOS) [Concomitant]

REACTIONS (1)
  - DIZZINESS [None]
